FAERS Safety Report 4588799-5 (Version None)
Quarter: 2005Q1

REPORT INFORMATION
  Report Type: 
  Country: None (occurrence: None)
  Receive Date: 20050222
  Receipt Date: 20050210
  Transmission Date: 20050727
  Serious: Yes (Other)
  Sender: FDA-Public Use
  Company Number: GB-JNJFOC-20050203113

PATIENT
  Age: 19 Year
  Sex: Male

DRUGS (4)
  1. HALOPERIDOL [Suspect]
     Indication: AGITATION
     Route: 049
  2. CANNABIS [Concomitant]
     Dosage: 15 JOINTS/DAY
  3. LORAZEPAM [Concomitant]
     Dosage: TAKEN PRN
     Route: 049
  4. OLANZAPINE [Concomitant]

REACTIONS (2)
  - DYSARTHRIA [None]
  - MUSCULOSKELETAL STIFFNESS [None]
